FAERS Safety Report 8282122-0 (Version None)
Quarter: 2012Q1

REPORT INFORMATION
  Report Type: 
  Country: None (occurrence: None)
  Receive Date: 20120323
  Receipt Date: 20120316
  Transmission Date: 20120608
  Serious: Yes (Other)
  Sender: FDA-Public Use
  Company Number: 2012031658

PATIENT
  Age: 6 Year
  Sex: Male
  Weight: 19.9583 kg

DRUGS (4)
  1. HIZENTRA [Suspect]
     Indication: COMBINED IMMUNODEFICIENCY
     Dosage: (2 G 1X/WEEK, 2 G (10 ML) VIA 2 SITES OVER 1HOUR SUBCUTANEOUS)
     Route: 058
     Dates: start: 20101107
  2. PULMICORT [Concomitant]
  3. ZYRTEC [Concomitant]
  4. FLONASE [Concomitant]

REACTIONS (1)
  - PNEUMONIA [None]
